FAERS Safety Report 24721598 (Version 5)
Quarter: 2025Q1

REPORT INFORMATION
  Report Type: Report from Study
  Country: US (occurrence: US)
  Receive Date: 20241211
  Receipt Date: 20250303
  Transmission Date: 20250408
  Serious: Yes (Hospitalization, Other)
  Sender: PFIZER
  Company Number: US-PFIZER INC-202400318128

PATIENT
  Age: 87 Year
  Sex: Male

DRUGS (25)
  1. VYNDAMAX [Suspect]
     Active Substance: TAFAMIDIS
     Indication: Amyloidosis
     Dosage: 61MG. TAKE ONE CAPSULE EVERY DAY
     Route: 048
     Dates: start: 20240110
  2. TORSEMIDE [Concomitant]
     Active Substance: TORSEMIDE
  3. TRAMADOL [Concomitant]
     Active Substance: TRAMADOL
  4. POTASSIUM CHLORIDE [Concomitant]
     Active Substance: POTASSIUM CHLORIDE
  5. TAMSULOSIN [Concomitant]
     Active Substance: TAMSULOSIN
  6. MIDODRINE [Concomitant]
     Active Substance: MIDODRINE
  7. LEVOTHYROXINE [Concomitant]
     Active Substance: LEVOTHYROXINE
  8. TROSPIUM [Concomitant]
     Active Substance: TROSPIUM
  9. ERYTHROMYCIN [Concomitant]
     Active Substance: ERYTHROMYCIN
  10. VITAMIN D3 [Concomitant]
     Active Substance: CHOLECALCIFEROL
  11. PANTOPRAZOLE [Concomitant]
     Active Substance: PANTOPRAZOLE
  12. XARELTO [Concomitant]
     Active Substance: RIVAROXABAN
  13. ARFORMOTEROL [Concomitant]
     Active Substance: ARFORMOTEROL
  14. CEPHALEXIN [Concomitant]
     Active Substance: CEPHALEXIN
  15. ELIQUIS [Concomitant]
     Active Substance: APIXABAN
  16. METHOCARBAMOL [Concomitant]
     Active Substance: METHOCARBAMOL
  17. KETOCONAZOLE [Concomitant]
     Active Substance: KETOCONAZOLE
  18. FUROSEMIDE [Concomitant]
     Active Substance: FUROSEMIDE
  19. EPLERENONE [Concomitant]
     Active Substance: EPLERENONE
  20. FINASTERIDE [Concomitant]
     Active Substance: FINASTERIDE
  21. ROSUVASTATIN [Concomitant]
     Active Substance: ROSUVASTATIN
  22. TRELEGY ELLIPTA [Concomitant]
     Active Substance: FLUTICASONE FUROATE\UMECLIDINIUM BROMIDE\VILANTEROL TRIFENATATE
  23. FAMOTIDINE [Concomitant]
     Active Substance: FAMOTIDINE
  24. AMIODARONE [Concomitant]
     Active Substance: AMIODARONE
  25. METOPROLOL [Concomitant]
     Active Substance: METOPROLOL

REACTIONS (4)
  - Dysphonia [Not Recovered/Not Resolved]
  - Abdominal discomfort [Not Recovered/Not Resolved]
  - Thyroid disorder [Recovered/Resolved]
  - Pneumonia [Unknown]

NARRATIVE: CASE EVENT DATE: 20240101
